FAERS Safety Report 9445000 (Version 1)
Quarter: 2013Q3

REPORT INFORMATION
  Report Type: Spontaneous
  Country: US (occurrence: None)
  Receive Date: 20130724
  Receipt Date: 20130724
  Transmission Date: 20140515
  Serious: Yes (Other)
  Sender: FDA-Public Use
  Company Number: 2013036946

PATIENT
  Age: 35 Year
  Sex: Female

DRUGS (4)
  1. PRIVIGEN [Suspect]
     Indication: BRONCHIAL HYPERREACTIVITY
     Route: 042
     Dates: start: 20130402
  2. CORTICOSTERIODS [Concomitant]
  3. TAVEGIL [Concomitant]
  4. SODIUM CHLORIDE [Concomitant]

REACTIONS (6)
  - Obstruction [None]
  - Dyspnoea [None]
  - Dyspnoea [None]
  - Flushing [None]
  - Rhinitis [None]
  - Cyanosis [None]
